FAERS Safety Report 21336259 (Version 1)
Quarter: 2022Q3

REPORT INFORMATION
  Report Type: Spontaneous
  Country: US (occurrence: None)
  Receive Date: 20220914
  Receipt Date: 20220914
  Transmission Date: 20221026
  Serious: No
  Sender: FDA-Public Use
  Company Number: None

PATIENT
  Sex: Male
  Weight: 93.89 kg

DRUGS (4)
  1. INLYTA [Suspect]
     Active Substance: AXITINIB
     Indication: Renal cancer
     Dosage: OTHER FREQUENCY : Q 12 HOURS;?
     Route: 048
     Dates: start: 20211215
  2. TRAMADOL [Concomitant]
  3. TAMSULOSIN [Concomitant]
  4. PROMETHAZINE [Concomitant]

REACTIONS (1)
  - Hospice care [None]
